FAERS Safety Report 22107042 (Version 1)
Quarter: 2023Q1

REPORT INFORMATION
  Report Type: Spontaneous
  Country: US (occurrence: US)
  Receive Date: 20230317
  Receipt Date: 20230317
  Transmission Date: 20230418
  Serious: No
  Sender: FDA-Public Use
  Company Number: US-SA-SAC20230314000702

PATIENT
  Sex: Female

DRUGS (3)
  1. DUPIXENT [Suspect]
     Active Substance: DUPILUMAB
     Indication: Asthma
     Dosage: 300 MG, QOW
     Route: 058
     Dates: start: 20210716
  2. RELIEVER [Concomitant]
     Active Substance: CAPSAICIN\MENTHOL
     Dosage: 1 OR 2 DAYS PER WEEK
  3. RESCUE [Concomitant]
     Dosage: 1 OR 2 DAYS PER WEEK

REACTIONS (3)
  - Impaired quality of life [Unknown]
  - Oropharyngeal pain [Unknown]
  - Eye irritation [Unknown]
